FAERS Safety Report 7748079-3 (Version None)
Quarter: 2011Q3

REPORT INFORMATION
  Report Type: 
  Country: None (occurrence: None)
  Receive Date: 20110913
  Receipt Date: 20110725
  Transmission Date: 20111222
  Serious: No
  Sender: FDA-Public Use
  Company Number: US-ALLERGAN-1110020US

PATIENT
  Age: 42 Year
  Sex: Female

DRUGS (2)
  1. ACZONE [Suspect]
     Indication: ACNE
     Dosage: 1 APPLICATION, BID
     Route: 061
     Dates: start: 20110701
  2. ACZONE [Suspect]
     Dosage: UNK

REACTIONS (1)
  - RASH PAPULAR [None]
